FAERS Safety Report 25923304 (Version 3)
Quarter: 2025Q4

REPORT INFORMATION
  Report Type: Spontaneous
  Country: EU (occurrence: EU)
  Receive Date: 20251015
  Receipt Date: 20251113
  Transmission Date: 20260118
  Serious: Yes (Death, Other)
  Sender: ROCHE
  Company Number: None

PATIENT
  Age: 76 Year
  Sex: Male

DRUGS (10)
  1. RITUXIMAB [Suspect]
     Active Substance: RITUXIMAB
     Indication: Hairy cell leukaemia
     Dosage: START DATE 21-OCT-2024
     Route: 042
     Dates: end: 20241021
  2. RITUXIMAB [Suspect]
     Active Substance: RITUXIMAB
     Dosage: START DATE 28-OCT-2024
     Route: 042
     Dates: end: 20241028
  3. CLADRIBINE [Suspect]
     Active Substance: CLADRIBINE
     Indication: Hairy cell leukaemia
     Dosage: START DATE 21-OCT-2024
     Route: 042
     Dates: end: 20241025
  4. ROXITHROMYCIN [Concomitant]
     Active Substance: ROXITHROMYCIN
     Indication: Prophylaxis
     Dosage: START DATE 13-OCT-2024
     Route: 048
     Dates: end: 20241107
  5. VALACYCLOVIR HYDROCHLORIDE [Concomitant]
     Active Substance: VALACYCLOVIR HYDROCHLORIDE
     Indication: Prophylaxis
     Dosage: START DATE 31-OCT-2024
     Route: 048
     Dates: end: 20241107
  6. ATOVAQUONE [Concomitant]
     Active Substance: ATOVAQUONE
     Indication: Prophylaxis
     Dosage: START DATE 30-OCT-2024
     Route: 048
     Dates: end: 20241107
  7. METHYLPREDNISOLONE [Concomitant]
     Active Substance: METHYLPREDNISOLONE
     Dosage: START DATE 12-OCT-2024
     Route: 042
     Dates: end: 20241014
  8. METHYLPREDNISOLONE [Concomitant]
     Active Substance: METHYLPREDNISOLONE
     Dosage: START DATE 16-OCT-2024
     Route: 042
     Dates: end: 20241026
  9. METHYLPREDNISOLONE [Concomitant]
     Active Substance: METHYLPREDNISOLONE
     Dosage: START DATE 27-OCT-2024
     Route: 042
     Dates: end: 20241029
  10. VEMURAFENIB [Concomitant]
     Active Substance: VEMURAFENIB
     Indication: Hairy cell leukaemia
     Route: 065

REACTIONS (5)
  - Febrile bone marrow aplasia [Unknown]
  - Shock [Unknown]
  - Enterococcal infection [Unknown]
  - Candida pneumonia [Fatal]
  - Off label use [Fatal]
